FAERS Safety Report 15041903 (Version 1)
Quarter: 2018Q2

REPORT INFORMATION
  Report Type: Spontaneous
  Country: US (occurrence: KR)
  Receive Date: 20180621
  Receipt Date: 20180621
  Transmission Date: 20180711
  Serious: Yes (Death, Other)
  Sender: FDA-Public Use
  Company Number: US-ALKEM LABORATORIES LIMITED-KR-ALKEM-2018-01817

PATIENT
  Age: 6 Month
  Sex: Female

DRUGS (1)
  1. LINEZOLID. [Suspect]
     Active Substance: LINEZOLID
     Indication: CELLULITIS STAPHYLOCOCCAL
     Dosage: UNK
     Route: 065

REACTIONS (4)
  - Condition aggravated [Unknown]
  - Multiple organ dysfunction syndrome [Unknown]
  - Blood lactic acid increased [Fatal]
  - Metabolic acidosis [Fatal]
